FAERS Safety Report 5909136-7 (Version None)
Quarter: 2008Q4

REPORT INFORMATION
  Report Type: 
  Country: None (occurrence: None)
  Receive Date: 20081006
  Receipt Date: 20080926
  Transmission Date: 20090506
  Serious: Yes (Other)
  Sender: FDA-Public Use
  Company Number: US-SANOFI-SYNTHELABO-A01200811893

PATIENT

DRUGS (4)
  1. LEUCOVORIN CALCIUM [Suspect]
     Dosage: UNK
     Route: 065
  2. FLUOROURACIL [Suspect]
     Dosage: UNK
     Route: 065
  3. OXALIPLATIN [Suspect]
     Indication: COLORECTAL CANCER METASTATIC
     Dosage: UNK
     Route: 065
  4. BEVACIZUMAB [Suspect]
     Dosage: UNK
     Route: 065

REACTIONS (1)
  - NEOPLASM [None]
